FAERS Safety Report 4841952-5 (Version None)
Quarter: 2005Q4

REPORT INFORMATION
  Report Type: 
  Country: None (occurrence: None)
  Receive Date: 20051130
  Receipt Date: 20051012
  Transmission Date: 20060501
  Serious: No
  Sender: FDA-Public Use
  Company Number: US-GLAXOSMITHKLINE-A0577997A

PATIENT
  Age: 41 Year
  Sex: Female

DRUGS (5)
  1. WELLBUTRIN XL [Suspect]
     Indication: ANXIETY
     Dosage: 300MG PER DAY
     Route: 048
     Dates: start: 20050809, end: 20051010
  2. PAXIL [Suspect]
     Route: 048
  3. KLONOPIN [Concomitant]
  4. DEPAKOTE [Concomitant]
  5. ORAL CONTRACEPTIVE [Concomitant]

REACTIONS (2)
  - ANGER [None]
  - CRYING [None]
